FAERS Safety Report 8928725 (Version 1)
Quarter: 2012Q4

REPORT INFORMATION
  Report Type: Spontaneous
  Country: US (occurrence: None)
  Receive Date: 20121126
  Receipt Date: 20121126
  Transmission Date: 20130627
  Serious: Yes (Disabling)
  Sender: FDA-Public Use
  Company Number: None

PATIENT
  Age: 56 Year
  Sex: Female
  Weight: 54.43 kg

DRUGS (1)
  1. LATISSE [Suspect]
     Indication: DRUG EFFECT DECREASED
     Dosage: lgtt baseline  of lashes   daily  top
     Route: 061
     Dates: start: 20120930, end: 20121030

REACTIONS (1)
  - Iris disorder [None]
